FAERS Safety Report 5274953-6 (Version None)
Quarter: 2007Q1

REPORT INFORMATION
  Report Type: 
  Country: None (occurrence: None)
  Receive Date: 20061207
  Receipt Date: 20060823
  Transmission Date: 20070707
  Serious: No
  Sender: FDA-Public Use
  Company Number: 36291

PATIENT

DRUGS (2)
  1. NEVANAC [Suspect]
     Indication: PROPHYLAXIS
  2. VIGAMOX [Suspect]
     Indication: PROPHYLAXIS

REACTIONS (1)
  - DEPOSIT EYE [None]
